FAERS Safety Report 22177636 (Version 2)
Quarter: 2023Q4

REPORT INFORMATION
  Report Type: Spontaneous
  Country: CA (occurrence: CA)
  Receive Date: 20230405
  Receipt Date: 20231019
  Transmission Date: 20240110
  Serious: Yes (Other)
  Sender: FDA-Public Use
  Company Number: CA-Covis Pharma Europe B.V.-2023COV00776

PATIENT
  Age: 78 Year
  Sex: Male

DRUGS (5)
  1. OMNARIS [Suspect]
     Active Substance: CICLESONIDE
     Indication: Productive cough
     Route: 045
  2. BREO ELLIPTA [Suspect]
     Active Substance: FLUTICASONE FUROATE\VILANTEROL TRIFENATATE
     Route: 065
  3. MEPOLIZUMAB [Suspect]
     Active Substance: MEPOLIZUMAB
     Indication: Asthma
     Route: 058
  4. PREDNISONE [Suspect]
     Active Substance: PREDNISONE
  5. ALBUTEROL [Suspect]
     Active Substance: ALBUTEROL

REACTIONS (6)
  - Lower respiratory tract infection [Unknown]
  - Cough [Unknown]
  - Inappropriate schedule of product administration [Unknown]
  - Mucosal discolouration [Unknown]
  - Productive cough [Unknown]
  - Off label use [Unknown]
